FAERS Safety Report 9032441 (Version 1)
Quarter: 2013Q1

REPORT INFORMATION
  Report Type: Spontaneous
  Country: US (occurrence: US)
  Receive Date: 20130125
  Receipt Date: 20130125
  Transmission Date: 20140127
  Serious: Yes (Other)
  Sender: FDA-Public Use
  Company Number: US-GLAXOSMITHKLINE-A0998902A

PATIENT
  Age: 57 Year
  Sex: Female
  Weight: 90.9 kg

DRUGS (8)
  1. LAMICTAL [Suspect]
     Indication: CONVULSION
     Dosage: 200MG TWICE PER DAY
     Route: 048
     Dates: start: 20110901
  2. LAMOTRIGINE [Suspect]
     Indication: CONVULSION
     Dosage: 150MG TWICE PER DAY
     Route: 048
     Dates: start: 20110203, end: 20110901
  3. ALPRAZOLAM [Suspect]
     Indication: ANXIETY
     Route: 065
     Dates: start: 20091022, end: 20121127
  4. COUMADIN [Concomitant]
  5. SERTRALINE [Concomitant]
  6. LEVOTHYROXINE [Concomitant]
  7. TOPIRAMATE [Concomitant]
  8. ALPRAZOLAM [Concomitant]

REACTIONS (5)
  - Convulsion [Recovered/Resolved]
  - Drug ineffective [Unknown]
  - Rash [Not Recovered/Not Resolved]
  - Cardiovascular disorder [Unknown]
  - Burning sensation [Unknown]
